FAERS Safety Report 15194254 (Version 1)
Quarter: 2018Q3

REPORT INFORMATION
  Report Type: Spontaneous
  Country: US (occurrence: US)
  Receive Date: 20180626
  Receipt Date: 20180626
  Transmission Date: 20181010
  Serious: No
  Sender: FDA-Public Use
  Company Number: None

PATIENT
  Age: 69 Year
  Sex: Female
  Weight: 70.31 kg

DRUGS (6)
  1. RECLAST [Suspect]
     Active Substance: ZOLEDRONIC ACID
  2. WOMEN^S DAILY VITAMIN [Concomitant]
  3. CALTRATE [Concomitant]
     Active Substance: CALCIUM CARBONATE
  4. LOSARTAN. [Concomitant]
     Active Substance: LOSARTAN
  5. OMEPRAZOLE. [Concomitant]
     Active Substance: OMEPRAZOLE
  6. VIT. D [Concomitant]

REACTIONS (7)
  - Asthenia [None]
  - Injection related reaction [None]
  - Pain in extremity [None]
  - Gait inability [None]
  - Arthralgia [None]
  - Renal pain [None]
  - Drug ineffective [None]

NARRATIVE: CASE EVENT DATE: 20180529
